FAERS Safety Report 21194581 (Version 1)
Quarter: 2022Q3

REPORT INFORMATION
  Report Type: Report from Study
  Country: US (occurrence: US)
  Receive Date: 20220810
  Receipt Date: 20220810
  Transmission Date: 20221026
  Serious: Yes (Hospitalization, Other)
  Sender: FDA-Public Use
  Company Number: US-TAKEDA-2022TUS053652

PATIENT
  Sex: Male

DRUGS (1)
  1. PONATINIB [Suspect]
     Active Substance: PONATINIB
     Indication: Chronic myeloid leukaemia
     Dosage: UNK UNK, QD
     Route: 065
     Dates: start: 202207

REACTIONS (7)
  - Blast cell crisis [Unknown]
  - Illness [Unknown]
  - Unevaluable event [Unknown]
  - Chronic myeloid leukaemia [Unknown]
  - Vascular device infection [Unknown]
  - Escherichia infection [Unknown]
  - Immunodeficiency [Unknown]
